FAERS Safety Report 6117712-4 (Version None)
Quarter: 2009Q1

REPORT INFORMATION
  Report Type: 
  Country: None (occurrence: None)
  Receive Date: 20090314
  Receipt Date: 20090128
  Transmission Date: 20090719
  Serious: No
  Sender: FDA-Public Use
  Company Number: US-ABBOTT-09P-163-0500455-00

PATIENT
  Sex: Male
  Weight: 70.37 kg

DRUGS (4)
  1. HUMIRA [Suspect]
     Indication: CROHN'S DISEASE
     Route: 058
     Dates: start: 20080401
  2. HUMIRA [Suspect]
     Indication: PYODERMA GANGRENOSUM
     Route: 058
     Dates: start: 20060101, end: 20080401
  3. INDOCORT [Concomitant]
     Indication: CROHN'S DISEASE
  4. VITAMIN B-12 [Concomitant]
     Indication: CROHN'S DISEASE
     Route: 050

REACTIONS (4)
  - CROHN'S DISEASE [None]
  - DIARRHOEA [None]
  - NAUSEA [None]
  - SKIN LESION [None]
